FAERS Safety Report 13545375 (Version 1)
Quarter: 2017Q2

REPORT INFORMATION
  Report Type: Spontaneous
  Country: NL (occurrence: NL)
  Receive Date: 20170515
  Receipt Date: 20170515
  Transmission Date: 20170830
  Serious: Yes (Hospitalization)
  Sender: FDA-Public Use
  Company Number: NL-BAYER-2017-088712

PATIENT
  Sex: Male
  Weight: 4 kg

DRUGS (2)
  1. LORATADINE. [Suspect]
     Active Substance: LORATADINE
     Indication: HYPERSENSITIVITY
     Dosage: 10 MG, QD
     Route: 064
     Dates: start: 201406, end: 201412
  2. IRON COMPLEX [Concomitant]
     Route: 064

REACTIONS (1)
  - Hyperbilirubinaemia neonatal [Recovered/Resolved]
